FAERS Safety Report 6625694-1 (Version None)
Quarter: 2010Q1

REPORT INFORMATION
  Report Type: 
  Country: None (occurrence: None)
  Receive Date: 20100310
  Receipt Date: 20100302
  Transmission Date: 20100710
  Serious: Yes (Death)
  Sender: FDA-Public Use
  Company Number: JP-ABBOTT-10P-087-0622665-00

PATIENT
  Age: 73 Year
  Sex: Male

DRUGS (4)
  1. LEUPROLIDE ACETATE [Suspect]
     Indication: PROSTATE CANCER
     Route: 058
     Dates: start: 20060809, end: 20060809
  2. LEUPROLIDE ACETATE [Suspect]
     Route: 058
     Dates: start: 20061220, end: 20061220
  3. LEUPROLIDE ACETATE [Suspect]
     Route: 058
     Dates: start: 20070425, end: 20071024
  4. CHLORMADINONE ACETATE TAB [Concomitant]
     Indication: PROSTATE CANCER
     Route: 048
     Dates: start: 20070425

REACTIONS (3)
  - CEREBRAL INFARCTION [None]
  - HEPATIC FUNCTION ABNORMAL [None]
  - URINARY INCONTINENCE [None]
